FAERS Safety Report 9531256 (Version 1)
Quarter: 2013Q3

REPORT INFORMATION
  Report Type: Spontaneous
  Country: US (occurrence: None)
  Receive Date: 20130916
  Receipt Date: 20130916
  Transmission Date: 20140515
  Serious: Yes (Other)
  Sender: FDA-Public Use
  Company Number: None

PATIENT
  Age: 29 Year
  Sex: Male
  Weight: 70.76 kg

DRUGS (1)
  1. PAROXETINE 40MG [Suspect]
     Indication: DEPRESSION
     Route: 048

REACTIONS (6)
  - Tinnitus [None]
  - Eye movement disorder [None]
  - Paraesthesia [None]
  - Nausea [None]
  - Movement disorder [None]
  - Migraine [None]
